FAERS Safety Report 5284555-3 (Version None)
Quarter: 2007Q2

REPORT INFORMATION
  Report Type: 
  Country: None (occurrence: None)
  Receive Date: 20070403
  Receipt Date: 20070320
  Transmission Date: 20071010
  Serious: Yes (Death, Hospitalization)
  Sender: FDA-Public Use
  Company Number: FR-GLAXOSMITHKLINE-B0464189A

PATIENT
  Age: 55 Year
  Sex: Male

DRUGS (4)
  1. AMOXICILLIN [Suspect]
     Dosage: 6G PER DAY
     Route: 065
  2. OFLOXACIN [Suspect]
     Route: 065
  3. PIPERACILLIN AND TAZOBACTAM [Suspect]
     Route: 065
  4. HYDROCORTISONE HEMISUCCINATE [Suspect]
     Dosage: 50MG FOUR TIMES PER DAY
     Route: 042

REACTIONS (5)
  - BRONCHOPULMONARY ASPERGILLOSIS [None]
  - LUNG DISORDER [None]
  - LUNG INFILTRATION [None]
  - MULTI-ORGAN FAILURE [None]
  - SEPTIC SHOCK [None]
